FAERS Safety Report 5167736-9 (Version None)
Quarter: 2006Q4

REPORT INFORMATION
  Report Type: 
  Country: None (occurrence: None)
  Receive Date: 20061204
  Receipt Date: 20061204
  Transmission Date: 20070319
  Serious: Yes (Death)
  Sender: FDA-Public Use
  Company Number: None

PATIENT
  Age: 55 Year
  Sex: Male
  Weight: 73 kg

DRUGS (8)
  1. BEVACIZUMAB (BEVACIZUMAB) 25MG/ML VIAL, NORMAL SALINE [Suspect]
     Indication: NON-SMALL CELL LUNG CANCER
     Dosage: 15MG/KG EVERY 3 WEEKS IV
     Route: 042
     Dates: start: 20060725, end: 20061114
  2. LIPITOR [Concomitant]
  3. LISINOPRIL [Concomitant]
  4. NICORETTE [Concomitant]
  5. ADVAIR DISKUS 100/50 [Concomitant]
  6. PRILOSEC [Concomitant]
  7. ROXICET ELIXIR [Concomitant]
  8. WELLBUTRIN [Concomitant]

REACTIONS (3)
  - MOUTH HAEMORRHAGE [None]
  - REFUSAL OF TREATMENT BY RELATIVE [None]
  - THROMBOCYTOPENIA [None]
